FAERS Safety Report 25523583 (Version 1)
Quarter: 2025Q3

REPORT INFORMATION
  Report Type: Spontaneous
  Country: EU (occurrence: EU)
  Receive Date: 20250707
  Receipt Date: 20250707
  Transmission Date: 20251021
  Serious: Yes (Hospitalization)
  Sender: BAYER HEALTHCARE LLC
  Company Number: EU-SANDOZ-SDZ2025DE039777

PATIENT
  Sex: Male

DRUGS (8)
  1. NAPROXEN SODIUM [Suspect]
     Active Substance: NAPROXEN SODIUM
     Indication: Axial spondyloarthritis
     Route: 065
     Dates: start: 20240111
  2. NAPROXEN SODIUM [Suspect]
     Active Substance: NAPROXEN SODIUM
     Indication: Axial spondyloarthritis
     Route: 065
     Dates: start: 20241015
  3. HYRIMOZ [Suspect]
     Active Substance: ADALIMUMAB-ADAZ
     Indication: Axial spondyloarthritis
     Route: 065
     Dates: start: 20200723, end: 20200806
  4. HYRIMOZ [Suspect]
     Active Substance: ADALIMUMAB-ADAZ
     Indication: Axial spondyloarthritis
     Route: 065
     Dates: start: 20201105, end: 20210915
  5. IBUPROFEN [Suspect]
     Active Substance: IBUPROFEN
     Indication: Axial spondyloarthritis
     Route: 065
     Dates: start: 20210130, end: 20211115
  6. DICLOFENAC [Suspect]
     Active Substance: DICLOFENAC
     Indication: Axial spondyloarthritis
     Route: 065
     Dates: start: 20211119
  7. DICLOFENAC [Suspect]
     Active Substance: DICLOFENAC
     Indication: Axial spondyloarthritis
     Route: 065
     Dates: start: 20230320, end: 20240110
  8. IDACIO [Suspect]
     Active Substance: ADALIMUMAB-AACF
     Indication: Axial spondyloarthritis
     Route: 065
     Dates: start: 20200820, end: 20201022

REACTIONS (1)
  - Axial spondyloarthritis [Unknown]

NARRATIVE: CASE EVENT DATE: 20240228
